FAERS Safety Report 9649049 (Version 5)
Quarter: 2015Q2

REPORT INFORMATION
  Report Type: Spontaneous
  Country: CA (occurrence: CA)
  Receive Date: 20131028
  Receipt Date: 20150604
  Transmission Date: 20150821
  Serious: Yes (Hospitalization, Other)
  Sender: FDA-Public Use
  Company Number: CA-ROCHE-1295362

PATIENT
  Age: 57 Year
  Sex: Female

DRUGS (5)
  1. PANTOLOC [Concomitant]
     Active Substance: PANTOPRAZOLE SODIUM
  2. SYMBICORT [Concomitant]
     Active Substance: BUDESONIDE\FORMOTEROL FUMARATE DIHYDRATE
  3. THYROXINE [Concomitant]
     Active Substance: LEVOTHYROXINE
  4. CETIRIZINE [Concomitant]
     Active Substance: CETIRIZINE HYDROCHLORIDE
  5. XOLAIR [Suspect]
     Active Substance: OMALIZUMAB
     Indication: ASTHMA
     Dosage: ONSET DATE : 24/MAY/2011
     Route: 058
     Dates: start: 20080131

REACTIONS (11)
  - Frustration [Unknown]
  - Pain in extremity [Unknown]
  - Hypersensitivity [Unknown]
  - Oropharyngeal pain [Unknown]
  - Fatigue [Unknown]
  - Influenza [Unknown]
  - Nasopharyngitis [Unknown]
  - Sleep disorder [Unknown]
  - Asthma [Unknown]
  - Serum sickness [Unknown]
  - Pain [Unknown]

NARRATIVE: CASE EVENT DATE: 20080131
